FAERS Safety Report 7278165-6 (Version None)
Quarter: 2011Q1

REPORT INFORMATION
  Report Type: 
  Country: None (occurrence: None)
  Receive Date: 20110207
  Receipt Date: 20110203
  Transmission Date: 20110831
  Serious: Yes (Other)
  Sender: FDA-Public Use
  Company Number: A0911758A

PATIENT
  Sex: Female

DRUGS (2)
  1. PUVA [Concomitant]
     Dates: start: 19970501
  2. SORIATANE [Suspect]
     Route: 048
     Dates: start: 19970501, end: 19970601

REACTIONS (2)
  - DRUG EXPOSURE DURING PREGNANCY [None]
  - PREMATURE RUPTURE OF MEMBRANES [None]
